FAERS Safety Report 6930422-6 (Version None)
Quarter: 2010Q3

REPORT INFORMATION
  Report Type: 
  Country: None (occurrence: None)
  Receive Date: 20100818
  Receipt Date: 20100809
  Transmission Date: 20110219
  Serious: Yes (Other)
  Sender: FDA-Public Use
  Company Number: US-PFIZER INC-2010087768

PATIENT
  Sex: Female
  Weight: 68.038 kg

DRUGS (12)
  1. CELEBREX [Suspect]
     Indication: ARTHRALGIA
     Dosage: 200 MG, 1X/DAY
     Dates: end: 20100706
  2. LYRICA [Suspect]
     Indication: ARTHRALGIA
     Dosage: 75 MG, 2X/DAY
     Route: 048
     Dates: start: 20100709
  3. LYRICA [Suspect]
     Indication: LUMBAR SPINAL STENOSIS
  4. LYRICA [Suspect]
     Indication: SCIATICA
  5. HYDROCHLOROTHIAZIDE [Concomitant]
     Indication: HYPERTENSION
     Dosage: 12.5 MG, 1X/DAY
     Route: 048
  6. SYNTHROID [Concomitant]
     Dosage: 0.75 MG, 1X/DAY
     Route: 048
  7. SYNTHROID [Concomitant]
     Dosage: 75 MCG, 1X/DAY
     Route: 048
  8. ACEBUTOLOL [Concomitant]
     Indication: CARDIAC FLUTTER
     Dosage: 400 MG, 1X/DAY
     Route: 048
  9. CALCIUM [Concomitant]
     Dosage: UNK
  10. PROZAC [Concomitant]
     Indication: DEPRESSION
     Dosage: 20 MG, 1X/DAY
     Route: 048
  11. TRAMADOL [Concomitant]
     Dosage: 50 MG, EVERY 6 HOURS AS NEEDED
     Route: 048
  12. AMBIEN [Concomitant]
     Dosage: 10 MG, DAILY AT BEDTIME
     Route: 048

REACTIONS (5)
  - BLOOD CREATININE INCREASED [None]
  - CONSTIPATION [None]
  - EUPHORIC MOOD [None]
  - EYE SWELLING [None]
  - MENTAL IMPAIRMENT [None]
